FAERS Safety Report 12182516 (Version 1)
Quarter: 2016Q1

REPORT INFORMATION
  Report Type: Spontaneous
  Country: FR (occurrence: FR)
  Receive Date: 20160316
  Receipt Date: 20160316
  Transmission Date: 20160526
  Serious: Yes (Other)
  Sender: FDA-Public Use
  Company Number: FR-BRISTOL-MYERS SQUIBB COMPANY-BMS-2016-018935

PATIENT
  Age: 11 Year
  Sex: Male
  Weight: 54 kg

DRUGS (5)
  1. EPITOMAX [Concomitant]
     Active Substance: TOPIRAMATE
     Indication: EPILEPSY
     Dosage: UNK
     Route: 065
     Dates: start: 201509
  2. KEPPRA [Concomitant]
     Active Substance: LEVETIRACETAM
     Indication: EPILEPSY
     Dosage: UNK
     Route: 065
     Dates: start: 201509
  3. EPITOMAX [Concomitant]
     Active Substance: TOPIRAMATE
     Indication: NEURODEVELOPMENTAL DISORDER
  4. ABILIFY [Suspect]
     Active Substance: ARIPIPRAZOLE
     Indication: PRODUCT USED FOR UNKNOWN INDICATION
     Dosage: 5 MG, QD
     Route: 048
     Dates: start: 20150917, end: 20160126
  5. KEPPRA [Concomitant]
     Active Substance: LEVETIRACETAM
     Indication: NEURODEVELOPMENTAL DISORDER

REACTIONS (2)
  - Glomerular filtration rate decreased [Recovered/Resolved]
  - Urinary retention [Recovered/Resolved]

NARRATIVE: CASE EVENT DATE: 201509
